FAERS Safety Report 24880012 (Version 1)
Quarter: 2025Q1

REPORT INFORMATION
  Report Type: Spontaneous
  Country: US (occurrence: None)
  Receive Date: 20250123
  Receipt Date: 20250123
  Transmission Date: 20250409
  Serious: Yes (Hospitalization)
  Sender: FDA-CTU
  Company Number: None

PATIENT
  Sex: Female

DRUGS (5)
  1. PULMOZYME [Suspect]
     Active Substance: DORNASE ALFA
     Indication: Cystic fibrosis
     Dosage: FREQUENCY : DAILY;?
     Route: 055
     Dates: start: 20220409
  2. AQUADEKS CAP [Concomitant]
  3. NAPROXEN TAB 250MG [Concomitant]
  4. TOBI PODHALER [Concomitant]
     Active Substance: TOBRAMYCIN
  5. TRANEXAMIC ACID [Concomitant]
     Active Substance: TRANEXAMIC ACID

REACTIONS (1)
  - Hospitalisation [None]
